FAERS Safety Report 4915289-X (Version None)
Quarter: 2006Q1

REPORT INFORMATION
  Report Type: 
  Country: None (occurrence: None)
  Receive Date: 20060217
  Receipt Date: 20060111
  Transmission Date: 20060701
  Serious: Yes (Other)
  Sender: FDA-Public Use
  Company Number: US-GLAXOSMITHKLINE-A0589453A

PATIENT
  Age: 41 Year
  Sex: Male
  Weight: 82.7 kg

DRUGS (12)
  1. ZOFRAN [Suspect]
     Indication: SCHIZOPHRENIA
     Route: 048
     Dates: start: 20051130
  2. CLOZARIL [Suspect]
     Indication: SCHIZOPHRENIA
     Dosage: 200MG PER DAY
     Dates: start: 20050101
  3. LUVOX [Suspect]
     Indication: OBSESSIVE-COMPULSIVE DISORDER
     Dosage: 150MG PER DAY
     Route: 048
     Dates: start: 20050101, end: 20060104
  4. DEPAKOTE [Concomitant]
     Indication: AGITATION
     Dosage: 3375MG PER DAY
     Route: 048
     Dates: start: 20041101
  5. PRILOSEC [Concomitant]
     Indication: GASTROOESOPHAGEAL REFLUX DISEASE
     Dosage: 20MG PER DAY
  6. ZYPREXA [Concomitant]
     Indication: SCHIZOPHRENIA
     Dosage: 25MG PER DAY
     Dates: start: 20040101
  7. XANAX [Concomitant]
     Indication: OBSESSIVE-COMPULSIVE DISORDER
     Dosage: .5MG THREE TIMES PER DAY
     Dates: start: 20050101, end: 20060101
  8. DOXYCYCLINE [Concomitant]
     Indication: ACNE CYSTIC
     Dosage: 100MG TWICE PER DAY
     Dates: start: 20051207
  9. MIRALAX [Concomitant]
     Indication: CONSTIPATION
     Route: 048
  10. VALIUM [Concomitant]
     Indication: ANXIETY
     Dosage: 5MG THREE TIMES PER DAY
  11. COGENTIN [Concomitant]
     Dosage: 1MG TWICE PER DAY
     Dates: start: 20060114
  12. ZOLOFT [Concomitant]
     Dosage: 200MG PER DAY
     Dates: start: 20060120

REACTIONS (16)
  - AGITATION [None]
  - AKATHISIA [None]
  - DROOLING [None]
  - DRUG INTERACTION [None]
  - DRUG TOXICITY [None]
  - ENERGY INCREASED [None]
  - EXTRAPYRAMIDAL DISORDER [None]
  - FAECAL INCONTINENCE [None]
  - HYPERVIGILANCE [None]
  - OBSESSIVE THOUGHTS [None]
  - PARANOIA [None]
  - POSTURE ABNORMAL [None]
  - SCREAMING [None]
  - SEDATION [None]
  - THERAPEUTIC RESPONSE UNEXPECTED [None]
  - URINARY INCONTINENCE [None]
